FAERS Safety Report 5203961-6 (Version None)
Quarter: 2007Q1

REPORT INFORMATION
  Report Type: 
  Country: None (occurrence: None)
  Receive Date: 20070105
  Receipt Date: 20070105
  Transmission Date: 20070707
  Serious: Yes (Other)
  Sender: FDA-Public Use
  Company Number: None

PATIENT
  Age: 47 Year
  Sex: Female

DRUGS (3)
  1. SERTRALINE [Suspect]
     Indication: MAJOR DEPRESSION
     Dosage: 100MG 1 1/2 QD PO
     Route: 048
     Dates: start: 20041128, end: 20070101
  2. SERTRALINE [Suspect]
     Indication: PANIC DISORDER
     Dosage: 100MG 1 1/2 QD PO
     Route: 048
     Dates: start: 20041128, end: 20070101
  3. XANAX [Concomitant]

REACTIONS (5)
  - ABDOMINAL PAIN [None]
  - ANOREXIA [None]
  - DIARRHOEA [None]
  - NAUSEA [None]
  - PHARMACEUTICAL PRODUCT COMPLAINT [None]
